FAERS Safety Report 8859990 (Version 3)
Quarter: 2012Q4

REPORT INFORMATION
  Report Type: 
  Country: DE (occurrence: DE)
  Receive Date: 20121025
  Receipt Date: 20121120
  Transmission Date: 20130627
  Serious: Yes (Other)
  Sender: FDA-Public Use
  Company Number: DE-PFIZER INC-2012257498

PATIENT
  Age: 31 Year
  Sex: Female

DRUGS (6)
  1. RAMIPRIL [Suspect]
     Indication: HYPERTENSION
     Dosage: UNK
     Route: 048
     Dates: start: 20090709, end: 20100126
  2. METFORMIN HCL [Suspect]
     Indication: TYPE 2 DIABETES MELLITUS
     Dosage: UNK
     Route: 048
     Dates: start: 20090709, end: 20100126
  3. METOPROLOL [Suspect]
     Indication: HYPERTENSION
     Dosage: UNK
     Route: 048
     Dates: start: 20090709, end: 20100126
  4. DOPEGYT [Concomitant]
     Indication: HYPERTENSION
     Dosage: 250 mg, 3x/day
     Route: 048
     Dates: start: 20100126, end: 20100210
  5. NOVORAPID [Concomitant]
     Indication: TYPE 2 DIABETES MELLITUS
     Dosage: 52 IU, 1x/day
     Route: 058
     Dates: start: 20100126, end: 20100210
  6. PROTAPHAN [Concomitant]
     Indication: TYPE 2 DIABETES MELLITUS
     Dosage: 30 IU, 1x/day
     Route: 058
     Dates: start: 20100126, end: 20100210

REACTIONS (4)
  - HELLP syndrome [Unknown]
  - Transaminases increased [Unknown]
  - Glycosylated haemoglobin increased [Unknown]
  - Platelet count decreased [Unknown]
